FAERS Safety Report 7905739-9 (Version None)
Quarter: 2011Q4

REPORT INFORMATION
  Report Type: 
  Country: None (occurrence: None)
  Receive Date: 20111108
  Receipt Date: 20111024
  Transmission Date: 20120403
  Serious: Yes (Hospitalization, Other)
  Sender: FDA-Public Use
  Company Number: 2011MA015824

PATIENT
  Age: 89 Year
  Sex: Male

DRUGS (10)
  1. METOPROLOL TARTRATE [Concomitant]
  2. DONEPAZIL [Concomitant]
  3. SIMVASTATIN [Concomitant]
  4. SOLIFENACIN SUCCINATE [Concomitant]
  5. FLUOXETINE HCL [Concomitant]
  6. VALACYCLOVIR HYDROCHLORIDE [Suspect]
     Indication: HERPES ZOSTER OPHTHALMIC
     Dosage: 1 G;Q8HR;PO
     Route: 048
  7. SODIUM BICARBONATE [Concomitant]
  8. OMEPRAZOLE [Concomitant]
  9. LEVOTHYROXINE SODIUM [Concomitant]
  10. LISINOPRIL [Concomitant]

REACTIONS (12)
  - BLOOD CREATININE INCREASED [None]
  - MENTAL STATUS CHANGES [None]
  - HALLUCINATION, VISUAL [None]
  - RHONCHI [None]
  - BLOOD SODIUM DECREASED [None]
  - CONFUSIONAL STATE [None]
  - BLOOD PRESSURE SYSTOLIC INCREASED [None]
  - BLOOD UREA INCREASED [None]
  - BLOOD POTASSIUM INCREASED [None]
  - AGITATION [None]
  - DISORIENTATION [None]
  - CREATININE RENAL CLEARANCE DECREASED [None]
